FAERS Safety Report 8803878 (Version 1)
Quarter: 2012Q4

REPORT INFORMATION
  Report Type: 
  Country: US (occurrence: US)
  Receive Date: 20120924
  Receipt Date: 20120924
  Transmission Date: 20130627
  Serious: No
  Sender: FDA-Public Use
  Company Number: US-PFIZER INC-2012235095

PATIENT
  Age: 34 Year
  Sex: Female
  Weight: 65.76 kg

DRUGS (4)
  1. ZOLOFT [Suspect]
     Indication: DEPRESSION
     Dosage: 100 mg, daily
     Dates: start: 200504, end: 201206
  2. ZOLOFT [Suspect]
     Indication: ANXIETY
     Dosage: 50 mg, daily
     Dates: start: 201206, end: 20120827
  3. ZOLOFT [Suspect]
     Dosage: 25 mg, daily
     Dates: start: 20120828, end: 20120904
  4. TRI-SPRINTEC [Concomitant]
     Indication: CONTRACEPTION
     Dosage: UNK, daily

REACTIONS (1)
  - Feeling abnormal [Recovered/Resolved]
